FAERS Safety Report 25832658 (Version 1)
Quarter: 2025Q3

REPORT INFORMATION
  Report Type: Spontaneous
  Country: US (occurrence: US)
  Receive Date: 20250922
  Receipt Date: 20250922
  Transmission Date: 20251020
  Serious: Yes (Life-Threatening, Hospitalization, Other)
  Sender: DR REDDYS
  Company Number: US-DRL-USA-USA/2025/09/014181

PATIENT
  Age: 83 Year
  Sex: Male

DRUGS (1)
  1. AMIODARONE [Suspect]
     Active Substance: AMIODARONE
     Indication: Atrial fibrillation
     Dosage: AMIODARONE 200 MG ONCE DAILY FOR ATRIAL FIBRILLATION FOR 6 MONTHS AGO

REACTIONS (4)
  - Inappropriate antidiuretic hormone secretion [Unknown]
  - Hyponatraemia [Recovering/Resolving]
  - Hypothyroidism [Recovering/Resolving]
  - Product use in unapproved indication [Unknown]
